FAERS Safety Report 22620892 (Version 1)
Quarter: 2023Q2

REPORT INFORMATION
  Report Type: Spontaneous
  Country: US (occurrence: None)
  Receive Date: 20230617
  Receipt Date: 20230617
  Transmission Date: 20230722
  Serious: Yes (Life-Threatening, Hospitalization)
  Sender: FDA-Public Use
  Company Number: None

PATIENT
  Age: 55 Year
  Sex: Female
  Weight: 85.5 kg

DRUGS (1)
  1. OZEMPIC [Suspect]
     Active Substance: SEMAGLUTIDE
     Indication: Weight decreased
     Dosage: FREQUENCY : WEEKLY;?OTHER ROUTE : INJECTED INTO FATTY AREA;?
     Route: 050
     Dates: start: 20230519, end: 20230531

REACTIONS (3)
  - Colitis [None]
  - Campylobacter test positive [None]
  - Blood lactic acid increased [None]

NARRATIVE: CASE EVENT DATE: 20230531
